FAERS Safety Report 5900836-1 (Version None)
Quarter: 2008Q3

REPORT INFORMATION
  Report Type: 
  Country: None (occurrence: None)
  Receive Date: 20080925
  Receipt Date: 20080911
  Transmission Date: 20090109
  Serious: Yes (Hospitalization, Disabling)
  Sender: FDA-Public Use
  Company Number: DSA_32406_2008

PATIENT
  Age: 76 Year
  Sex: Female

DRUGS (6)
  1. ENALAPRIL MALEATE [Suspect]
     Indication: HYPERTENSION
     Dosage: (20 MG QD ORAL)
     Route: 048
  2. LERCANIDIPINE HYDROCHLORIDE (LERCANIDIPINE HYDROCHLORIDE) 20 MG [Suspect]
     Indication: HYPERTENSION
     Dosage: (20 MG QD ORAL)
     Route: 048
  3. LANSOPRAZOLE [Suspect]
     Indication: INCISIONAL HERNIA
     Dosage: (DF ORAL)
     Route: 048
  4. PAROXETINE HCL [Suspect]
     Indication: DEPRESSION
     Dosage: (DF ORAL)
     Route: 048
  5. PIPOBROMA (PIPOBROMAN) [Suspect]
     Indication: POLYCYTHAEMIA VERA
     Dosage: (DF ORAL)
     Route: 048
  6. ACEPROMAXINE + ACEPROMAZINE + CLORAZEPATE DIPOTASSIUM [Suspect]
     Indication: INSOMNIA
     Dosage: (DF ORAL)
     Route: 048
     Dates: end: 20080529

REACTIONS (2)
  - AMYOTROPHIC LATERAL SCLEROSIS [None]
  - PYRAMIDAL TRACT SYNDROME [None]
